FAERS Safety Report 6501090-2 (Version None)
Quarter: 2009Q4

REPORT INFORMATION
  Report Type: 
  Country: None (occurrence: None)
  Receive Date: 20091216
  Receipt Date: 20090710
  Transmission Date: 20100525
  Serious: No
  Sender: FDA-Public Use
  Company Number: A0796324A

PATIENT
  Age: 55 Year
  Sex: Female

DRUGS (1)
  1. COMMIT [Suspect]
     Dates: start: 20090704, end: 20090709

REACTIONS (4)
  - EYELID OEDEMA [None]
  - FACE OEDEMA [None]
  - SWELLING FACE [None]
  - WEIGHT INCREASED [None]
